FAERS Safety Report 21945241 (Version 1)
Quarter: 2023Q1

REPORT INFORMATION
  Report Type: Spontaneous
  Country: US (occurrence: None)
  Receive Date: 20230201
  Receipt Date: 20230201
  Transmission Date: 20230417
  Serious: Yes (Death)
  Sender: FDA-Public Use
  Company Number: None

PATIENT
  Age: 75 Year
  Sex: Female

DRUGS (16)
  1. RAYALDEE [Suspect]
     Active Substance: CALCIFEDIOL
     Indication: Renal transplant
     Dates: start: 202104
  2. TACROLIMUS [Suspect]
     Active Substance: TACROLIMUS
  3. AMIODARONE [Concomitant]
     Active Substance: AMIODARONE
  4. ATORVASTATIN [Concomitant]
     Active Substance: ATORVASTATIN
  5. BASAGLAR KWIKPEN [Concomitant]
     Active Substance: INSULIN GLARGINE
  6. Carvediolol 3.125 [Concomitant]
  7. Cyclosporine 0.05% opth [Concomitant]
  8. ELIQUIS [Concomitant]
     Active Substance: APIXABAN
  9. ESCITALOPRAM [Concomitant]
     Active Substance: ESCITALOPRAM OXALATE
  10. FUROSEMIDE [Concomitant]
     Active Substance: FUROSEMIDE
  11. Iron Complex 150 mg [Concomitant]
  12. MYCOPHENOLIC ACID [Concomitant]
     Active Substance: MYCOPHENOLIC ACID
  13. Nlfedipine 30 mg CC [Concomitant]
  14. PANTOPRAZOLE SODIUM [Concomitant]
     Active Substance: PANTOPRAZOLE SODIUM
  15. PREDNISONE [Concomitant]
     Active Substance: PREDNISONE
  16. TRULICITY [Concomitant]
     Active Substance: DULAGLUTIDE

REACTIONS (1)
  - Death [None]

NARRATIVE: CASE EVENT DATE: 20230131
